FAERS Safety Report 24105131 (Version 4)
Quarter: 2024Q4

REPORT INFORMATION
  Report Type: Report from Study
  Country: US (occurrence: US)
  Receive Date: 20240717
  Receipt Date: 20241009
  Transmission Date: 20250115
  Serious: No
  Sender: LUNDBECK
  Company Number: US-LUNDBECK-DKLU4000795

PATIENT

DRUGS (1)
  1. VYEPTI [Suspect]
     Active Substance: EPTINEZUMAB-JJMR
     Indication: Migraine
     Dosage: 100 MILLIGRAM
     Route: 041
     Dates: start: 20240605

REACTIONS (5)
  - Malaise [Unknown]
  - Nasal congestion [Recovered/Resolved]
  - Arthritis [Unknown]
  - Drug effect less than expected [Unknown]
  - Influenza like illness [Unknown]
